FAERS Safety Report 10999472 (Version 1)
Quarter: 2015Q2

REPORT INFORMATION
  Report Type: Spontaneous
  Country: US (occurrence: US)
  Receive Date: 20150408
  Receipt Date: 20150408
  Transmission Date: 20150821
  Serious: No
  Sender: FDA-Public Use
  Company Number: US-SA-2014SA069431

PATIENT
  Sex: Female

DRUGS (2)
  1. ALLEGRA [Suspect]
     Active Substance: FEXOFENADINE HYDROCHLORIDE
     Indication: HYPERSENSITIVITY
     Route: 048
  2. ZYRTEC [Concomitant]
     Active Substance: CETIRIZINE HYDROCHLORIDE

REACTIONS (8)
  - Somnolence [Unknown]
  - Musculoskeletal pain [Unknown]
  - Wrong technique in drug usage process [Unknown]
  - Dry mouth [Unknown]
  - Nervousness [Unknown]
  - Weight decreased [Unknown]
  - Heart rate increased [Unknown]
  - Neck pain [Unknown]
